FAERS Safety Report 9758951 (Version 1)
Quarter: 2013Q4

REPORT INFORMATION
  Report Type: Spontaneous
  Country: US (occurrence: None)
  Receive Date: 20131216
  Receipt Date: 20131216
  Transmission Date: 20140711
  Serious: No
  Sender: FDA-Public Use
  Company Number: 423980

PATIENT
  Age: 77 Year
  Sex: Male
  Weight: 112 kg

DRUGS (1)
  1. NITROPRESS [Suspect]
     Indication: PRODUCT USED FOR UNKNOWN INDICATION
     Dosage: NOT REPORTED, NOT REPORTED, UNKNOWN

REACTIONS (2)
  - Hypotension [None]
  - Bradycardia [None]
